FAERS Safety Report 4337548-4 (Version None)
Quarter: 2004Q2

REPORT INFORMATION
  Report Type: 
  Country: None (occurrence: None)
  Receive Date: 20040408
  Receipt Date: 20040405
  Transmission Date: 20050107
  Serious: Yes (Death, Other)
  Sender: FDA-Public Use
  Company Number: USA-2004-0012725

PATIENT
  Age: 53 Year
  Sex: Female
  Weight: 59 kg

DRUGS (9)
  1. OXYCONTIN [Suspect]
     Indication: PAIN
     Dosage: 80 MG, BID
  2. ALCOHOL (ETHANOL) [Suspect]
  3. COCAINE [Suspect]
  4. CITALOPRAM [Suspect]
  5. CARISOPRODOL [Suspect]
  6. TEMAZEPAM [Suspect]
  7. ACETAMINOPHEN [Suspect]
  8. ALPRAZOLAM [Suspect]
  9. CAFFEINE (CAFFEINE) [Suspect]

REACTIONS (13)
  - ACCIDENTAL OVERDOSE [None]
  - ALCOHOL POISONING [None]
  - ARTERIOSCLEROSIS [None]
  - AUTOIMMUNE THYROIDITIS [None]
  - BRAIN OEDEMA [None]
  - CARDIOMEGALY [None]
  - COMA [None]
  - DRUG ABUSER [None]
  - DRUG TOXICITY [None]
  - MULTIPLE DRUG OVERDOSE [None]
  - NEPHROSCLEROSIS [None]
  - PULMONARY CONGESTION [None]
  - PULMONARY OEDEMA [None]
